FAERS Safety Report 18973110 (Version 1)
Quarter: 2021Q1

REPORT INFORMATION
  Report Type: Spontaneous
  Country: US (occurrence: US)
  Receive Date: 20210305
  Receipt Date: 20210305
  Transmission Date: 20210420
  Serious: Yes (Death, Hospitalization)
  Sender: FDA-Public Use
  Company Number: None

PATIENT
  Age: 74 Year
  Sex: Male
  Weight: 88.2 kg

DRUGS (17)
  1. ONDANSETRON 8MG [Concomitant]
     Active Substance: ONDANSETRON
  2. AMIODARONE 200MG [Concomitant]
     Active Substance: AMIODARONE
  3. K?DUR 20MEQ [Concomitant]
  4. CALCIUM 600 WITH VIT D [Concomitant]
  5. TAMSULOSIN 0.4MG [Concomitant]
     Active Substance: TAMSULOSIN
  6. LORAZEPAM 1MG [Concomitant]
     Active Substance: LORAZEPAM
  7. ASPIRIN 81MG [Concomitant]
     Active Substance: ASPIRIN
  8. FLONASE [Concomitant]
     Active Substance: FLUTICASONE PROPIONATE
  9. LEVOTHYROXINE 100MCG [Concomitant]
     Active Substance: LEVOTHYROXINE
  10. ELIQUIS [Concomitant]
     Active Substance: APIXABAN
  11. LYRICA [Concomitant]
     Active Substance: PREGABALIN
  12. FERROUS SULFATE 325MG [Concomitant]
     Active Substance: FERROUS SULFATE
  13. METOPROLOL 25MG [Concomitant]
     Active Substance: METOPROLOL
  14. ROSUVASTATIN 10MG [Concomitant]
     Active Substance: ROSUVASTATIN
  15. CAPECITABINE. [Suspect]
     Active Substance: CAPECITABINE
     Indication: GASTRIC CANCER
     Route: 048
     Dates: start: 20210220, end: 20210228
  16. MEGESTROL 20MG [Concomitant]
  17. PERCOCET [Concomitant]
     Active Substance: ACETAMINOPHEN\OXYCODONE HYDROCHLORIDE

REACTIONS (1)
  - Sepsis [None]

NARRATIVE: CASE EVENT DATE: 20210301
